FAERS Safety Report 6716142-1 (Version None)
Quarter: 2010Q2

REPORT INFORMATION
  Report Type: 
  Country: None (occurrence: None)
  Receive Date: 20100507
  Receipt Date: 20100430
  Transmission Date: 20101027
  Serious: Yes (Hospitalization, Other)
  Sender: FDA-Public Use
  Company Number: US-BAYER-201015006BCC

PATIENT
  Age: 67 Year
  Sex: Female
  Weight: 84 kg

DRUGS (9)
  1. ASPIRIN [Suspect]
     Indication: CAROTID ARTERY OCCLUSION
     Dosage: TOTAL DAILY DOSE: 325 MG
     Route: 048
     Dates: start: 20080501
  2. TANEZUMAB [Suspect]
     Indication: BACK PAIN
     Dosage: BLINDED DOSE (10 VC. 20 MG) EVERY 8 WEEKS
     Route: 042
     Dates: start: 20100319
  3. CLOPIDOGREL [Suspect]
     Indication: CAROTID ARTERY OCCLUSION
     Dosage: TOTAL DAILY DOSE: 75 MG
     Route: 048
     Dates: start: 20080501
  4. FUROSEMIDE [Concomitant]
     Dates: start: 20070101
  5. DIAZEPAM [Concomitant]
     Dates: start: 20000101
  6. AMLODIPINE [Concomitant]
     Dates: start: 20090901
  7. SIMVASTATIN [Concomitant]
     Dates: start: 20070101
  8. CITALOPRAM HYDROBROMIDE [Concomitant]
     Dates: start: 20090701
  9. MULTI-VITAMINS [Concomitant]
     Dates: start: 20000101

REACTIONS (3)
  - ANAEMIA [None]
  - GASTROINTESTINAL HAEMORRHAGE [None]
  - MELAENA [None]
